FAERS Safety Report 9364520 (Version 1)
Quarter: 2013Q2

REPORT INFORMATION
  Report Type: Spontaneous
  Country: ES (occurrence: None)
  Receive Date: 20130619
  Receipt Date: 20130619
  Transmission Date: 20140414
  Serious: Yes (Hospitalization)
  Sender: FDA-Public Use
  Company Number: 1745289

PATIENT
  Age: 66 Year
  Sex: Male

DRUGS (1)
  1. PACLITAXEL [Suspect]
     Indication: BREAST NEOPLASM
     Route: 042
     Dates: start: 20120320, end: 20120320

REACTIONS (1)
  - Respiratory arrest [None]
